FAERS Safety Report 20162754 (Version 1)
Quarter: 2021Q4

REPORT INFORMATION
  Report Type: Spontaneous
  Country: US (occurrence: US)
  Receive Date: 20211209
  Receipt Date: 20211209
  Transmission Date: 20220303
  Serious: Yes (Hospitalization)
  Sender: FDA-Public Use
  Company Number: US-SA-SAC20211206000396

PATIENT
  Age: 21 Year
  Sex: Female

DRUGS (2)
  1. DUPIXENT [Suspect]
     Active Substance: DUPILUMAB
     Indication: Asthma
     Dosage: 300 MG, QOW
     Route: 058
  2. SINGULAIR [Concomitant]
     Active Substance: MONTELUKAST SODIUM

REACTIONS (3)
  - Iron deficiency anaemia [Unknown]
  - Asthma [Unknown]
  - Product use issue [Unknown]
